FAERS Safety Report 7067763-0 (Version None)
Quarter: 2010Q4

REPORT INFORMATION
  Report Type: 
  Country: None (occurrence: None)
  Receive Date: 20101028
  Receipt Date: 20100129
  Transmission Date: 20110411
  Serious: No
  Sender: FDA-Public Use
  Company Number: A0832501A

PATIENT
  Age: 45 Year
  Sex: Female

DRUGS (6)
  1. SEREVENT [Suspect]
     Indication: COUGH
     Dosage: 1PUFF TWICE PER DAY
     Route: 055
     Dates: start: 20000101
  2. ZEBETA [Concomitant]
  3. LESCOL [Concomitant]
  4. NEURONTIN [Concomitant]
  5. DOMPERIDONE [Concomitant]
  6. INSULIN [Concomitant]

REACTIONS (2)
  - COUGH [None]
  - PRODUCT QUALITY ISSUE [None]
